FAERS Safety Report 6158201-0 (Version None)
Quarter: 2009Q2

REPORT INFORMATION
  Report Type: 
  Country: None (occurrence: None)
  Receive Date: 20090417
  Receipt Date: 20090413
  Transmission Date: 20091009
  Serious: No
  Sender: FDA-Public Use
  Company Number: US-B.I. PHARMACEUTICALS,INC./RIDGEFIELD-2009-BP-04634BP

PATIENT
  Age: 51 Year
  Sex: Female

DRUGS (2)
  1. MIRAPEX [Suspect]
     Indication: RESTLESS LEGS SYNDROME
     Dosage: 2MG
     Route: 048
     Dates: start: 20000101
  2. COZAAR [Concomitant]
     Indication: HYPERTENSION
     Dates: start: 20000101

REACTIONS (4)
  - CONSTIPATION [None]
  - ERYTHEMA [None]
  - OVERDOSE [None]
  - SKIN DISORDER [None]
